FAERS Safety Report 5816658-6 (Version None)
Quarter: 2008Q3

REPORT INFORMATION
  Report Type: 
  Country: None (occurrence: None)
  Receive Date: 20080721
  Receipt Date: 20080709
  Transmission Date: 20090109
  Serious: Yes (Other)
  Sender: FDA-Public Use
  Company Number: AT-PFIZER INC-2008048745

PATIENT
  Sex: Female

DRUGS (4)
  1. ZELDOX (CAPSULES) [Suspect]
     Indication: OBSESSIVE-COMPULSIVE DISORDER
     Dosage: DAILY DOSE:140MG
     Route: 048
  2. TRITTICO [Interacting]
     Indication: DEPRESSION
     Dosage: DAILY DOSE:150MG
     Route: 048
  3. TRITTICO [Interacting]
     Indication: ANXIETY
  4. TRITTICO [Interacting]
     Indication: PARANOIA

REACTIONS (2)
  - DRUG INTERACTION [None]
  - TONGUE SPASM [None]
